FAERS Safety Report 8201877-4 (Version None)
Quarter: 2012Q1

REPORT INFORMATION
  Report Type: 
  Country: None (occurrence: None)
  Receive Date: 20120308
  Receipt Date: 20120224
  Transmission Date: 20120608
  Serious: Yes (Hospitalization)
  Sender: FDA-Public Use
  Company Number: DSM-2012-00249

PATIENT
  Age: 86 Year
  Sex: Female

DRUGS (5)
  1. ASAFLOW (ACETYLSALICYLIC ACID (ACETYLSALICYLIC AICD) [Concomitant]
  2. AMLODIPINE SANDOZ (AMLODIPINE MESILATE) (AMLODIPINE MESILATE) [Concomitant]
  3. OLMESARTAN MEDOXOMIL [Suspect]
     Indication: PRODUCT USED FOR UNKNOWN INDICATION
     Dosage: 20 MG, ORAL
     Route: 048
     Dates: start: 20120101, end: 20120101
  4. PLAVIX [Concomitant]
  5. NOBITEN (NEBIVOLOL) (NEBIVOLOL) [Concomitant]

REACTIONS (10)
  - MITRAL VALVE INCOMPETENCE [None]
  - BLOOD UREA INCREASED [None]
  - BLOOD CHLORIDE DECREASED [None]
  - GAMMA-GLUTAMYLTRANSFERASE INCREASED [None]
  - MONOCYTE COUNT INCREASED [None]
  - BLOOD SODIUM DECREASED [None]
  - DILATATION ATRIAL [None]
  - THROMBOCYTOPENIA [None]
  - TRICUSPID VALVE INCOMPETENCE [None]
  - CARDIAC ANEURYSM [None]
